FAERS Safety Report 18963644 (Version 5)
Quarter: 2025Q3

REPORT INFORMATION
  Report Type: Spontaneous
  Country: US (occurrence: US)
  Receive Date: 20210303
  Receipt Date: 20250715
  Transmission Date: 20251021
  Serious: Yes (Other)
  Sender: ELI LILLY AND COMPANY
  Company Number: US-ELI_LILLY_AND_COMPANY-US202103001573

PATIENT
  Age: 68 Year
  Sex: Male

DRUGS (43)
  1. HUMALOG [Suspect]
     Active Substance: INSULIN LISPRO
     Indication: Type 2 diabetes mellitus
     Route: 058
  2. HUMALOG [Suspect]
     Active Substance: INSULIN LISPRO
     Indication: Type 2 diabetes mellitus
     Route: 058
  3. HUMALOG [Suspect]
     Active Substance: INSULIN LISPRO
     Indication: Type 2 diabetes mellitus
     Route: 058
  4. HUMALOG [Suspect]
     Active Substance: INSULIN LISPRO
     Indication: Type 2 diabetes mellitus
     Route: 058
  5. HUMALOG [Suspect]
     Active Substance: INSULIN LISPRO
     Indication: Type 2 diabetes mellitus
     Route: 058
  6. HUMALOG [Suspect]
     Active Substance: INSULIN LISPRO
     Indication: Type 2 diabetes mellitus
     Route: 058
  7. HUMALOG [Suspect]
     Active Substance: INSULIN LISPRO
     Route: 058
  8. HUMALOG [Suspect]
     Active Substance: INSULIN LISPRO
     Route: 058
  9. HUMALOG [Suspect]
     Active Substance: INSULIN LISPRO
     Route: 058
  10. HUMALOG [Suspect]
     Active Substance: INSULIN LISPRO
     Route: 058
  11. HUMALOG [Suspect]
     Active Substance: INSULIN LISPRO
     Route: 058
  12. HUMALOG [Suspect]
     Active Substance: INSULIN LISPRO
     Route: 058
  13. HUMALOG [Suspect]
     Active Substance: INSULIN LISPRO
     Route: 058
  14. HUMALOG [Suspect]
     Active Substance: INSULIN LISPRO
     Route: 058
  15. HUMALOG [Suspect]
     Active Substance: INSULIN LISPRO
     Route: 058
  16. HUMALOG [Suspect]
     Active Substance: INSULIN LISPRO
     Route: 058
  17. HUMALOG [Suspect]
     Active Substance: INSULIN LISPRO
     Route: 058
  18. HUMALOG [Suspect]
     Active Substance: INSULIN LISPRO
     Route: 058
  19. HUMALOG [Suspect]
     Active Substance: INSULIN LISPRO
     Route: 058
  20. HUMALOG [Suspect]
     Active Substance: INSULIN LISPRO
     Route: 058
  21. HUMALOG [Suspect]
     Active Substance: INSULIN LISPRO
     Route: 058
  22. HUMALOG [Suspect]
     Active Substance: INSULIN LISPRO
     Route: 058
  23. HUMALOG [Suspect]
     Active Substance: INSULIN LISPRO
     Route: 058
  24. HUMALOG [Suspect]
     Active Substance: INSULIN LISPRO
     Route: 058
  25. HUMALOG [Suspect]
     Active Substance: INSULIN LISPRO
     Route: 058
  26. HUMALOG [Suspect]
     Active Substance: INSULIN LISPRO
     Route: 058
  27. HUMALOG [Suspect]
     Active Substance: INSULIN LISPRO
     Route: 058
  28. HUMALOG [Suspect]
     Active Substance: INSULIN LISPRO
     Route: 065
  29. HUMALOG [Suspect]
     Active Substance: INSULIN LISPRO
     Route: 065
  30. HUMALOG [Suspect]
     Active Substance: INSULIN LISPRO
     Route: 065
  31. HUMALOG [Suspect]
     Active Substance: INSULIN LISPRO
     Route: 065
  32. HUMALOG [Suspect]
     Active Substance: INSULIN LISPRO
     Route: 065
  33. HUMALOG [Suspect]
     Active Substance: INSULIN LISPRO
     Route: 065
  34. HUMALOG [Suspect]
     Active Substance: INSULIN LISPRO
     Route: 065
  35. HUMALOG [Suspect]
     Active Substance: INSULIN LISPRO
     Route: 065
  36. HUMALOG [Suspect]
     Active Substance: INSULIN LISPRO
     Route: 065
  37. HUMALOG [Suspect]
     Active Substance: INSULIN LISPRO
     Route: 065
  38. HUMALOG [Suspect]
     Active Substance: INSULIN LISPRO
     Route: 065
  39. HUMALOG [Suspect]
     Active Substance: INSULIN LISPRO
     Route: 065
  40. TRULICITY [Suspect]
     Active Substance: DULAGLUTIDE
     Indication: Type 2 diabetes mellitus
     Route: 058
  41. TRULICITY [Suspect]
     Active Substance: DULAGLUTIDE
     Route: 058
  42. TOUJEO [Concomitant]
     Active Substance: INSULIN GLARGINE
     Indication: Type 2 diabetes mellitus
  43. TOUJEO MAX [Concomitant]
     Active Substance: INSULIN GLARGINE
     Indication: Type 2 diabetes mellitus
     Dosage: 40 U, EACH MORNING

REACTIONS (11)
  - Blindness [Unknown]
  - Glaucoma [Unknown]
  - Central vision loss [Unknown]
  - Macular hole [Unknown]
  - Diabetic retinopathy [Unknown]
  - Visual impairment [Unknown]
  - Metamorphopsia [Unknown]
  - Weight decreased [Unknown]
  - Expired product administered [Unknown]
  - Blood glucose increased [Unknown]
  - Drug ineffective [Unknown]

NARRATIVE: CASE EVENT DATE: 20110101
